FAERS Safety Report 20762075 (Version 2)
Quarter: 2022Q2

REPORT INFORMATION
  Report Type: Spontaneous
  Country: US (occurrence: US)
  Receive Date: 20220428
  Receipt Date: 20220428
  Transmission Date: 20220720
  Serious: No
  Sender: FDA-Public Use
  Company Number: US-ELI_LILLY_AND_COMPANY-US202204008090

PATIENT
  Sex: Female

DRUGS (1)
  1. FORTEO [Suspect]
     Active Substance: TERIPARATIDE
     Indication: Osteoporosis
     Dosage: 20 UG, UNKNOWN
     Route: 058
     Dates: start: 20220401

REACTIONS (6)
  - Nasopharyngitis [Not Recovered/Not Resolved]
  - Injection site hypersensitivity [Unknown]
  - Injection site bruising [Unknown]
  - Onychoclasis [Unknown]
  - Vaginal discharge [Unknown]
  - Breast swelling [Unknown]
